FAERS Safety Report 8382389 (Version 5)
Quarter: 2012Q4

REPORT INFORMATION
  Report Type: Report from Study
  Country: DE (occurrence: DE)
  Receive Date: 20120201
  Receipt Date: 20120912
  Transmission Date: 20130627
  Serious: Yes (Hospitalization)
  Sender: FDA-Public Use
  Company Number: DE-UCBSA-049965

PATIENT
  Sex: Female
  Weight: 75 kg

DRUGS (32)
  1. CERTOLIZUMAB PEGOL [Suspect]
     Indication: RHEUMATOID ARTHRITIS
     Dosage: NO OF DOSES RECEIVED-24, CUMULATIVE DOSE-4800 MG
     Route: 058
     Dates: start: 20110224, end: 20120112
  2. ARAVA [Suspect]
     Indication: RHEUMATOID ARTHRITIS
     Dosage: FREQUENCY 1
     Route: 048
     Dates: start: 200912, end: 201201
  3. ARAVA [Suspect]
     Indication: RHEUMATOID ARTHRITIS
     Dosage: FREQUENCY 1
     Route: 048
     Dates: start: 20120120
  4. ARAVA [Suspect]
     Indication: RHEUMATOID ARTHRITIS
     Dates: start: 200912, end: 20111026
  5. ARAVA [Suspect]
     Indication: RHEUMATOID ARTHRITIS
     Dates: start: 20111026
  6. PREDNISOLON [Concomitant]
     Indication: RHEUMATOID ARTHRITIS
     Route: 048
     Dates: start: 2007
  7. PREDNISOLON [Concomitant]
     Indication: RHEUMATOID ARTHRITIS
     Dates: start: 20090514, end: 201102
  8. PREDNISOLON [Concomitant]
     Indication: RHEUMATOID ARTHRITIS
     Dates: start: 20110215, end: 20110215
  9. PREDNISOLON [Concomitant]
     Indication: RHEUMATOID ARTHRITIS
     Dates: start: 20110216, end: 20110218
  10. PREDNISOLON [Concomitant]
     Indication: RHEUMATOID ARTHRITIS
     Dates: start: 20110219, end: 20110225
  11. PREDNISOLON [Concomitant]
     Indication: RHEUMATOID ARTHRITIS
     Dates: start: 20110226, end: 20110314
  12. PREDNISOLON [Concomitant]
     Indication: RHEUMATOID ARTHRITIS
     Dates: start: 20110315, end: 20110327
  13. PREDNISOLON [Concomitant]
     Indication: RHEUMATOID ARTHRITIS
     Dates: start: 20110328, end: 20110404
  14. PREDNISOLON [Concomitant]
     Indication: RHEUMATOID ARTHRITIS
     Dates: start: 20110405, end: 20110417
  15. PREDNISOLON [Concomitant]
     Indication: RHEUMATOID ARTHRITIS
     Dates: start: 20110418, end: 20110516
  16. PREDNISOLON [Concomitant]
     Indication: RHEUMATOID ARTHRITIS
     Dates: start: 20110517
  17. AMLODIPIN [Concomitant]
     Indication: HYPERTENSION
     Dates: start: 20110226, end: 20110227
  18. AMLODIPIN [Concomitant]
     Indication: HYPERTENSION
     Dates: start: 20110228, end: 2011
  19. AMLODIPIN [Concomitant]
     Indication: HYPERTENSION
     Dosage: 5 MG: BIM
     Route: 048
     Dates: start: 2011
  20. IRBESARTAN [Concomitant]
     Indication: HYPERTENSION
     Dosage: FREQUENCY 2
     Route: 048
     Dates: start: 2009
  21. IRBESARTAN [Concomitant]
     Indication: HYPERTENSION
     Dates: start: 20110216, end: 20110224
  22. IRBESARTAN [Concomitant]
     Indication: HYPERTENSION
     Dates: start: 20110225
  23. IDEOS [Concomitant]
     Indication: OSTEOPOROSIS
     Dosage: FREQUENCY 2
     Route: 048
     Dates: start: 2009
  24. VIGANTOLETTEN [Concomitant]
     Indication: OSTEOPOROSIS
     Route: 048
     Dates: start: 20110224
  25. APROVEL [Concomitant]
     Indication: HYPERTENSION
     Dosage: FREQUENCY-1
     Route: 048
     Dates: start: 20110226
  26. LORAZEPAM [Concomitant]
     Indication: SLEEP DISORDER
     Dates: start: 201103, end: 2011
  27. LORAZEPAM [Concomitant]
     Indication: SLEEP DISORDER
     Dosage: 0.5MG TIS
     Dates: start: 201107
  28. MAGNESIUM [Concomitant]
     Indication: MUSCLE SPASMS
     Dates: start: 20110222
  29. PANTOZOL [Concomitant]
     Indication: PROPHYLAXIS
     Dates: start: 20110216, end: 20110228
  30. DICLOFENAC [Concomitant]
     Indication: PAIN
     Dosage: 75 MG EVERY DAY AFTERNOON
     Dates: start: 20110215, end: 20110225
  31. DICLOFENAC [Concomitant]
     Indication: PAIN
     Dates: start: 201104
  32. PNEUMOCOCCAL VACCINE [Concomitant]
     Dates: start: 20110223, end: 20110223

REACTIONS (3)
  - Systemic lupus erythematosus [Unknown]
  - Fungal skin infection [Recovering/Resolving]
  - Psoriasis [Not Recovered/Not Resolved]
